FAERS Safety Report 7671060-X (Version None)
Quarter: 2011Q3

REPORT INFORMATION
  Report Type: 
  Country: None (occurrence: None)
  Receive Date: 20110805
  Receipt Date: 20110805
  Transmission Date: 20111222
  Serious: No
  Sender: FDA-Public Use
  Company Number: None

PATIENT
  Age: 52 Year
  Sex: Male
  Weight: 174.6349 kg

DRUGS (1)
  1. NIFEDIPINE [Suspect]
     Indication: BLOOD PRESSURE
     Dosage: NIFEDIPINE ER DAILY BY MOUTH
     Route: 048
     Dates: start: 20101025, end: 20110804

REACTIONS (1)
  - ELECTROCARDIOGRAM QT PROLONGED [None]
